FAERS Safety Report 5380292-5 (Version None)
Quarter: 2007Q3

REPORT INFORMATION
  Report Type: 
  Country: None (occurrence: None)
  Receive Date: 20070706
  Receipt Date: 20070629
  Transmission Date: 20080115
  Serious: Yes (Other)
  Sender: FDA-Public Use
  Company Number: CH-ROCHE-504803

PATIENT
  Age: 81 Year
  Sex: Male
  Weight: 70 kg

DRUGS (4)
  1. BONIVA [Suspect]
     Indication: OSTEOPOROSIS
     Route: 040
     Dates: start: 20070306, end: 20070306
  2. OMEPRAZOLUM [Concomitant]
     Indication: GASTROOESOPHAGEAL REFLUX DISEASE
     Route: 048
     Dates: start: 20040101
  3. CALCIUM-SANDOZ [Concomitant]
     Indication: OSTEOPOROSIS
     Dosage: TRADE NAME: CALCIUM-SANDOZ D3. GENERIC NAME: COLECALCIFEROL/CALCIUM CARBONATE.
     Route: 048
     Dates: start: 20070115
  4. METAMUCIL [Concomitant]
     Indication: CONSTIPATION
     Dosage: GENERIC NAME REPORTED AS GLUCOSE MONOHYDRATE/PLANTAGO OVATA HUSK.
     Route: 048
     Dates: start: 20060101

REACTIONS (4)
  - DYSPNOEA [None]
  - HYPERHIDROSIS [None]
  - ODYNOPHAGIA [None]
  - VOMITING [None]
